FAERS Safety Report 19037784 (Version 2)
Quarter: 2021Q2

REPORT INFORMATION
  Report Type: Spontaneous
  Country: AT (occurrence: AT)
  Receive Date: 20210322
  Receipt Date: 20210401
  Transmission Date: 20210717
  Serious: Yes (Other)
  Sender: FDA-Public Use
  Company Number: AT-AMGEN-AUTSP2021040350

PATIENT
  Age: 79 Year
  Sex: Female
  Weight: 48 kg

DRUGS (32)
  1. TRASTUZUMAB. [Suspect]
     Active Substance: TRASTUZUMAB
     Dosage: 276 MILLIGRAM, Q3WK
     Route: 042
     Dates: start: 20181019, end: 20181019
  2. PACLITAXEL. [Suspect]
     Active Substance: PACLITAXEL
     Indication: BREAST CANCER
     Dosage: 113.69 MILLIGRAM, QWK
     Route: 042
     Dates: start: 20180810
  3. PACLITAXEL. [Suspect]
     Active Substance: PACLITAXEL
     Dosage: 142.11 MILLIGRAM, QWK
     Route: 042
     Dates: start: 20180928, end: 20181005
  4. ENTEROBENE [Concomitant]
     Indication: DIARRHOEA
     Dosage: UNK
     Dates: start: 20181127
  5. TRITTICO [Concomitant]
     Active Substance: TRAZODONE HYDROCHLORIDE
     Dosage: UNK
  6. MOLAXOLE [Concomitant]
     Active Substance: POLYETHYLENE GLYCOL 3350\POTASSIUM CHLORIDE\SODIUM BICARBONATE\SODIUM CHLORIDE
     Dosage: UNK
     Dates: start: 20191115
  7. PARKEMED [Concomitant]
     Active Substance: MEFENAMIC ACID
     Indication: ARTHRALGIA
     Dosage: UNK
     Dates: start: 20180914
  8. TRASTUZUMAB. [Suspect]
     Active Substance: TRASTUZUMAB
     Indication: BREAST CANCER
     Dosage: 384 MILLIGRAM, Q3WK
     Route: 042
     Dates: start: 20180810, end: 20180831
  9. KONAKION [Concomitant]
     Active Substance: PHYTONADIONE
     Dosage: UNK
     Dates: start: 20191115
  10. CIPROXINE [CIPROFLOXACIN] [Concomitant]
     Indication: GASTROENTERITIS RADIATION
     Dosage: UNK
     Dates: start: 20181118
  11. LASIX [Concomitant]
     Active Substance: FUROSEMIDE
     Indication: OEDEMA PERIPHERAL
     Dosage: UNK
     Dates: start: 20191106, end: 20191115
  12. CEOLAT [Concomitant]
     Dosage: UNK
     Dates: start: 20191115
  13. SERACTIL [Concomitant]
     Active Substance: DEXIBUPROFEN
     Indication: OSTEONECROSIS OF JAW
     Dosage: UNK
     Dates: start: 20190725, end: 20191015
  14. VENDAL [MORPHINE SULFATE] [Concomitant]
     Indication: DYSPNOEA
     Dosage: UNK
     Dates: start: 20191111
  15. MYCOSTATIN [Concomitant]
     Active Substance: NYSTATIN
     Indication: MUCOSAL INFLAMMATION
     Dosage: UNK
     Dates: start: 20190819
  16. TRASTUZUMAB. [Suspect]
     Active Substance: TRASTUZUMAB
     Dosage: 384 MILLIGRAM, Q3WK
     Route: 042
     Dates: start: 20180928, end: 20180928
  17. PANTOLOC [PANTOPRAZOLE] [Concomitant]
     Active Substance: PANTOPRAZOLE SODIUM
     Indication: ABDOMINAL PAIN UPPER
     Dosage: UNK
     Dates: start: 20181109, end: 20191101
  18. TEMESTA [LORAZEPAM] [Concomitant]
     Active Substance: LORAZEPAM
     Dosage: UNK
  19. FORTECORTIN [DEXAMETHASONE] [Concomitant]
     Active Substance: DEXAMETHASONE
     Dosage: UNK
     Dates: start: 20191115
  20. LETROZOLE. [Suspect]
     Active Substance: LETROZOLE
     Indication: BREAST CANCER
     Dosage: 2.5 MILLIGRAM, QD
     Route: 048
     Dates: start: 20181029
  21. TRASTUZUMAB EMTANSINE [Suspect]
     Active Substance: ADO-TRASTUZUMAB EMTANSINE
     Indication: BREAST CANCER
     Dosage: 154 MILLIGRAM, Q3WK
     Route: 042
     Dates: start: 20190704, end: 20190704
  22. PASPERTIN [METOCLOPRAMIDE HYDROCHLORIDE] [Concomitant]
     Active Substance: METOCLOPRAMIDE HYDROCHLORIDE
     Indication: NAUSEA
     Dosage: UNK
     Dates: start: 20191108, end: 20191115
  23. AVELOX [Concomitant]
     Active Substance: MOXIFLOXACIN HYDROCHLORIDE
     Indication: OSTEONECROSIS OF JAW
     Dosage: UNK
     Dates: start: 20190919, end: 20191101
  24. PERTUZUMAB. [Suspect]
     Active Substance: PERTUZUMAB
     Indication: BREAST CANCER
     Dosage: 840 MILLIGRAM, Q3WK
     Route: 042
     Dates: start: 20180810
  25. PALBOCICLIB [Suspect]
     Active Substance: PALBOCICLIB
     Indication: BREAST CANCER
     Dosage: 125 MILLIGRAM
     Route: 048
     Dates: start: 20190919
  26. FULVESTRANT. [Suspect]
     Active Substance: FULVESTRANT
     Indication: BREAST CANCER
     Dosage: 500 MILLIGRAM, Q4WK
     Route: 030
     Dates: start: 20190919, end: 20191112
  27. CAPHOSOL [CALCIUM CHLORIDE;SODIUM CHLORIDE;SODIUM PHOSPHATE DIBASIC;SO [Concomitant]
     Indication: MUCOSAL INFLAMMATION
     Dosage: UNK
     Dates: start: 20180921
  28. TAZONAM [Concomitant]
     Active Substance: TAZOBACTAM
     Indication: INFECTION
     Dosage: UNK
     Dates: start: 20191102, end: 20191113
  29. NOVALGINA [Concomitant]
     Active Substance: METAMIZOLE SODIUM
     Dosage: UNK
     Dates: start: 20181126, end: 20191103
  30. TAMOXIFEN [Suspect]
     Active Substance: TAMOXIFEN
     Indication: BREAST CANCER
     Dosage: 20 MILLIGRAM
     Route: 048
     Dates: start: 20190819, end: 20190827
  31. GUTTALAX [SODIUM PICOSULFATE] [Concomitant]
     Active Substance: SODIUM PICOSULFATE
     Dosage: UNK
     Dates: start: 20191115
  32. ANTIFLAT [Concomitant]
     Dosage: UNK
     Dates: start: 20181126

REACTIONS (4)
  - Ascites [Recovering/Resolving]
  - Off label use [Unknown]
  - White blood cell count decreased [Recovered/Resolved]
  - Neutrophil count decreased [Recovered/Resolved]

NARRATIVE: CASE EVENT DATE: 20180810
